FAERS Safety Report 6943161-2 (Version None)
Quarter: 2010Q3

REPORT INFORMATION
  Report Type: 
  Country: None (occurrence: None)
  Receive Date: 20100826
  Receipt Date: 20100817
  Transmission Date: 20110219
  Serious: Yes (Other)
  Sender: FDA-Public Use
  Company Number: JP-PFIZER INC-2010103514

PATIENT
  Sex: Female

DRUGS (2)
  1. ZITHROMAC [Suspect]
     Indication: PERIODONTAL DISEASE
     Dosage: UNK
     Route: 048
  2. POPON S [Concomitant]

REACTIONS (4)
  - DIARRHOEA [None]
  - STOMATITIS [None]
  - VULVOVAGINAL DISCOMFORT [None]
  - VULVOVAGINITIS [None]
